FAERS Safety Report 10068129 (Version 1)
Quarter: 2014Q2

REPORT INFORMATION
  Report Type: Spontaneous
  Country: US (occurrence: US)
  Receive Date: 20140409
  Receipt Date: 20140409
  Transmission Date: 20141212
  Serious: No
  Sender: FDA-Public Use
  Company Number: US-PFIZER INC-2014094724

PATIENT
  Age: 38 Year
  Sex: Female

DRUGS (1)
  1. IBUPROFEN [Suspect]
     Indication: ARTHROPATHY
     Dosage: 400 MG, 3X/DAY (400MG, 2 TAB)
     Route: 048

REACTIONS (2)
  - Drug ineffective for unapproved indication [Unknown]
  - Gastrooesophageal reflux disease [Unknown]
